FAERS Safety Report 13655294 (Version 1)
Quarter: 2017Q2

REPORT INFORMATION
  Report Type: Spontaneous
  Country: US (occurrence: US)
  Receive Date: 20170614
  Receipt Date: 20170614
  Transmission Date: 20170830
  Serious: Yes (Hospitalization)
  Sender: FDA-Public Use
  Company Number: None

PATIENT
  Age: 49 Year
  Sex: Male
  Weight: 103.87 kg

DRUGS (1)
  1. EMPAGLIFLOZIN [Suspect]
     Active Substance: EMPAGLIFLOZIN
     Indication: DIABETES MELLITUS
     Route: 048
     Dates: start: 20170318, end: 20170322

REACTIONS (7)
  - Dizziness [None]
  - Fatigue [None]
  - Presyncope [None]
  - Abdominal pain [None]
  - Syncope [None]
  - Back pain [None]
  - Loss of consciousness [None]

NARRATIVE: CASE EVENT DATE: 20170324
